FAERS Safety Report 8592711-1 (Version None)
Quarter: 2012Q3

REPORT INFORMATION
  Report Type: 
  Country: None (occurrence: None)
  Receive Date: 20120814
  Receipt Date: 20120702
  Transmission Date: 20120928
  Serious: Yes (Hospitalization)
  Sender: FDA-Public Use
  Company Number: US-COVIDIEN/TYCO HEALTHCARE/MALLINCKRODT-T201202705

PATIENT
  Age: 9 Year

DRUGS (1)
  1. FENTANYL [Suspect]
     Dosage: UNK

REACTIONS (1)
  - ACCIDENTAL EXPOSURE [None]
